FAERS Safety Report 7005101-X (Version None)
Quarter: 2010Q3

REPORT INFORMATION
  Report Type: 
  Country: None (occurrence: None)
  Receive Date: 20100917
  Receipt Date: 20100906
  Transmission Date: 20110219
  Serious: Yes (Other)
  Sender: FDA-Public Use
  Company Number: 1000016185

PATIENT
  Sex: Male

DRUGS (1)
  1. MEMANTINE HCL [Suspect]

REACTIONS (1)
  - HYPERTENSIVE CRISIS [None]
